FAERS Safety Report 4287689-5 (Version None)
Quarter: 2004Q1

REPORT INFORMATION
  Report Type: 
  Country: None (occurrence: None)
  Receive Date: 20040209
  Receipt Date: 20030829
  Transmission Date: 20041129
  Serious: No
  Sender: FDA-Public Use
  Company Number: US-GLAXOSMITHKLINE-A0424108A

PATIENT
  Age: 59 Year

DRUGS (5)
  1. PAXIL [Suspect]
     Indication: DEPRESSION
     Dosage: 6.25MG PER DAY
     Route: 048
     Dates: start: 20030818
  2. PROTONIX [Concomitant]
  3. NASACORT [Concomitant]
  4. MULTIVITAMIN [Concomitant]
  5. FOSAMAX [Concomitant]

REACTIONS (1)
  - NERVOUSNESS [None]
